FAERS Safety Report 26171905 (Version 1)
Quarter: 2025Q4

REPORT INFORMATION
  Report Type: Spontaneous
  Country: US (occurrence: US)
  Receive Date: 20251217
  Receipt Date: 20251217
  Transmission Date: 20260117
  Serious: Yes (Hospitalization)
  Sender: ACCORD
  Company Number: US-MLMSERVICE-20251201-PI732928-00203-1

PATIENT
  Age: 25 Year
  Sex: Male

DRUGS (2)
  1. LISINOPRIL [Suspect]
     Active Substance: LISINOPRIL
     Indication: Chronic kidney disease
     Dosage: INITIATED AND INCREASING HIS DOSAGE
  2. LISINOPRIL [Suspect]
     Active Substance: LISINOPRIL
     Indication: Proteinuria
     Dosage: INITIATED AND INCREASING HIS DOSAGE

REACTIONS (3)
  - Hyperkalaemia [Unknown]
  - Bundle branch block right [Unknown]
  - Off label use [Unknown]
